FAERS Safety Report 4272905-6 (Version None)
Quarter: 2004Q1

REPORT INFORMATION
  Report Type: 
  Country: None (occurrence: None)
  Receive Date: 20040114
  Receipt Date: 20031230
  Transmission Date: 20041129
  Serious: Yes (Hospitalization)
  Sender: FDA-Public Use
  Company Number: US062429

PATIENT
  Age: 53 Year
  Sex: Female
  Weight: 81.64 kg

DRUGS (12)
  1. ENBREL [Suspect]
     Indication: RHEUMATOID ARTHRITIS
     Dosage: 25 MG, SC
     Route: 058
  2. PREDNISONE [Concomitant]
  3. TRIAMCINOLONE ACETONIDE [Concomitant]
  4. SALMETEROL HYDROXYNAPHTHOATE [Concomitant]
  5. MONTELUKAST [Concomitant]
  6. PHENOBARBITAL TAB [Concomitant]
  7. BUTORPHANOL [Concomitant]
  8. GABAPENTIN [Concomitant]
  9. LANSOPRAZOLE [Concomitant]
  10. VALDECOXIB [Concomitant]
  11. HYDROXYZINE [Concomitant]
  12. ESCITALOPRAM [Concomitant]

REACTIONS (3)
  - BEHCET'S SYNDROME [None]
  - CHOLESTASIS [None]
  - GILBERT'S SYNDROME [None]
